FAERS Safety Report 19453852 (Version 1)
Quarter: 2021Q2

REPORT INFORMATION
  Report Type: Spontaneous
  Country: US (occurrence: US)
  Receive Date: 20210623
  Receipt Date: 20210623
  Transmission Date: 20210717
  Serious: No
  Sender: FDA-Public Use
  Company Number: US-SA-2021SA206496

PATIENT
  Age: 82 Year
  Sex: Male

DRUGS (6)
  1. DUPIXENT [Suspect]
     Active Substance: DUPILUMAB
     Indication: DERMATITIS ATOPIC
     Dosage: 300 MG, QOW
     Dates: start: 20201009
  2. HYDROXYZINE [Concomitant]
     Active Substance: HYDROXYZINE HYDROCHLORIDE
     Indication: PRURITUS
  3. GABAPENTIN. [Concomitant]
     Active Substance: GABAPENTIN
  4. HYDROXYZINE HCL [Concomitant]
     Active Substance: HYDROXYZINE HYDROCHLORIDE
  5. PIMECROLIMUS. [Concomitant]
     Active Substance: PIMECROLIMUS
  6. MOMETASONE [Concomitant]
     Active Substance: MOMETASONE

REACTIONS (2)
  - Pruritus [Unknown]
  - Dermatitis atopic [Unknown]
